FAERS Safety Report 9104330 (Version 2)
Quarter: 2013Q1

REPORT INFORMATION
  Report Type: Spontaneous
  Country: US (occurrence: US)
  Receive Date: 20130219
  Receipt Date: 20130222
  Transmission Date: 20140127
  Serious: No
  Sender: FDA-Public Use
  Company Number: US-009507513-1302USA007496

PATIENT
  Sex: Male

DRUGS (10)
  1. VICTRELIS [Suspect]
     Indication: HEPATITIS C
     Dosage: 800 MG, Q8H
     Route: 048
     Dates: start: 20121015
  2. RIBAVIRIN [Suspect]
     Dosage: UNK
     Dates: start: 20120915
  3. PEGASYS [Suspect]
     Dosage: UNK
     Dates: start: 20120915
  4. VITAMIN B12 RATIOPHARM [Concomitant]
  5. FOLIC ACID [Concomitant]
  6. VITAMIN D (UNSPECIFIED) [Concomitant]
  7. VITAMIN E [Concomitant]
  8. ATENOLOL [Concomitant]
  9. HYTRIN [Concomitant]
  10. TRAZODONE HYDROCHLORIDE [Concomitant]

REACTIONS (8)
  - Feeling cold [Not Recovered/Not Resolved]
  - Rash pruritic [Not Recovered/Not Resolved]
  - White blood cell count decreased [Not Recovered/Not Resolved]
  - Platelet count decreased [Not Recovered/Not Resolved]
  - Dry skin [Not Recovered/Not Resolved]
  - Fatigue [Not Recovered/Not Resolved]
  - Dysgeusia [Not Recovered/Not Resolved]
  - Anaemia [Not Recovered/Not Resolved]
